FAERS Safety Report 8922389 (Version 1)
Quarter: 2012Q4

REPORT INFORMATION
  Report Type: 
  Country: US (occurrence: US)
  Receive Date: 20121126
  Receipt Date: 20121126
  Transmission Date: 20130627
  Serious: Yes (Other)
  Sender: FDA-Public Use
  Company Number: US-JNJFOC-20121108009

PATIENT
  Sex: Male
  Weight: 83.92 kg

DRUGS (9)
  1. INVEGA [Suspect]
     Indication: SCHIZOAFFECTIVE DISORDER
     Route: 048
     Dates: start: 201202, end: 201205
  2. INVEGA [Suspect]
     Indication: SCHIZOAFFECTIVE DISORDER
     Dosage: Daily as needed
     Route: 048
     Dates: start: 2012
  3. INVEGA SUSTENNA [Suspect]
     Indication: SCHIZOAFFECTIVE DISORDER
     Dosage: March or April 2012
     Route: 030
     Dates: start: 2012
  4. HALDOL [Suspect]
     Indication: SCHIZOAFFECTIVE DISORDER
     Route: 048
     Dates: start: 201210
  5. HALDOL [Suspect]
     Indication: SCHIZOAFFECTIVE DISORDER
     Dosage: 2 mg in the morning and 5 mg in the evening
     Route: 048
     Dates: start: 201207, end: 201210
  6. VITAMIN [Concomitant]
     Indication: PRODUCT USED FOR UNKNOWN INDICATION
     Route: 065
  7. CLONAZEPAM [Concomitant]
     Indication: ANXIETY
     Route: 048
  8. COGENTIN [Concomitant]
     Indication: MUSCULOSKELETAL STIFFNESS
     Route: 048
     Dates: start: 201202, end: 201207
  9. COGENTIN [Concomitant]
     Indication: MUSCULOSKELETAL STIFFNESS
     Route: 048
     Dates: start: 201207

REACTIONS (4)
  - Retinitis pigmentosa [Not Recovered/Not Resolved]
  - Therapeutic response decreased [Not Recovered/Not Resolved]
  - Musculoskeletal stiffness [Not Recovered/Not Resolved]
  - Feeling abnormal [Not Recovered/Not Resolved]
